FAERS Safety Report 10965819 (Version 2)
Quarter: 2015Q2

REPORT INFORMATION
  Report Type: Spontaneous
  Country: US (occurrence: US)
  Receive Date: 20150330
  Receipt Date: 20150529
  Transmission Date: 20150821
  Serious: No
  Sender: FDA-Public Use
  Company Number: US-009507513-1503USA010129

PATIENT
  Age: 16 Year
  Sex: Female
  Weight: 50.79 kg

DRUGS (1)
  1. NEXPLANON [Suspect]
     Active Substance: ETONOGESTREL
     Indication: CONTRACEPTION
     Dosage: SINGLE ROD (SUBDERMAL IN RIGHT ARM)
     Route: 059
     Dates: start: 20141002, end: 2015

REACTIONS (4)
  - Implant site urticaria [Recovered/Resolved]
  - Dysfunctional uterine bleeding [Recovered/Resolved]
  - Seasonal allergy [Not Recovered/Not Resolved]
  - Vaginal haemorrhage [Not Recovered/Not Resolved]

NARRATIVE: CASE EVENT DATE: 201410
